FAERS Safety Report 18758452 (Version 1)
Quarter: 2021Q1

REPORT INFORMATION
  Report Type: Spontaneous
  Country: US (occurrence: US)
  Receive Date: 20210120
  Receipt Date: 20210120
  Transmission Date: 20210419
  Serious: No
  Sender: FDA-Public Use
  Company Number: US-UNITED THERAPEUTICS-UNT-2020-018616

PATIENT
  Sex: Male
  Weight: 62.9 kg

DRUGS (6)
  1. TYVASO [Suspect]
     Active Substance: TREPROSTINIL
     Dosage: UNK
  2. MORPHINE [Suspect]
     Active Substance: MORPHINE
     Indication: PRODUCT USED FOR UNKNOWN INDICATION
     Dosage: UNK
  3. TADALAFIL. [Concomitant]
     Active Substance: TADALAFIL
     Indication: PRODUCT USED FOR UNKNOWN INDICATION
     Dosage: UNK
     Route: 065
  4. TYVASO [Suspect]
     Active Substance: TREPROSTINIL
     Dosage: UNK
  5. TYVASO [Suspect]
     Active Substance: TREPROSTINIL
     Indication: PULMONARY ARTERIAL HYPERTENSION
     Dosage: UNK
     Dates: start: 20201111
  6. TYVASO [Suspect]
     Active Substance: TREPROSTINIL
     Dosage: 18?54 ?G, QID
     Dates: start: 202011

REACTIONS (19)
  - Appetite disorder [Unknown]
  - Decreased appetite [Unknown]
  - Secretion discharge [Unknown]
  - Back pain [Unknown]
  - Diarrhoea [Recovered/Resolved]
  - Headache [Unknown]
  - Cough [Unknown]
  - Sinus disorder [Unknown]
  - Tinnitus [Not Recovered/Not Resolved]
  - Taste disorder [Not Recovered/Not Resolved]
  - Aphonia [Unknown]
  - Nausea [Unknown]
  - Head discomfort [Unknown]
  - Flatulence [Not Recovered/Not Resolved]
  - Dysphonia [Unknown]
  - Somnolence [Unknown]
  - Dyspnoea [Unknown]
  - Weight decreased [Unknown]
  - Productive cough [Unknown]

NARRATIVE: CASE EVENT DATE: 2020
